FAERS Safety Report 14163091 (Version 1)
Quarter: 2017Q4

REPORT INFORMATION
  Report Type: Spontaneous
  Country: RS (occurrence: RS)
  Receive Date: 20171106
  Receipt Date: 20171106
  Transmission Date: 20180321
  Serious: Yes (Life-Threatening)
  Sender: FDA-Public Use
  Company Number: RS-TEVA-821173ISR

PATIENT
  Age: 40 Year
  Sex: Female

DRUGS (2)
  1. SINDAXEL [Suspect]
     Active Substance: PACLITAXEL
     Dosage: 100  DAILY;
     Route: 042
     Dates: start: 20171006, end: 20171006
  2. SINDAXEL [Suspect]
     Active Substance: PACLITAXEL
     Dosage: 30 MILLIGRAM DAILY;
     Route: 042
     Dates: start: 20171006, end: 20171006

REACTIONS (6)
  - Hyperaemia [Recovered/Resolved]
  - Loss of consciousness [Recovered/Resolved]
  - Blood pressure immeasurable [Recovered/Resolved]
  - Nausea [Recovered/Resolved]
  - Epigastric discomfort [Recovered/Resolved]
  - Oedema [Recovered/Resolved]

NARRATIVE: CASE EVENT DATE: 20171006
